FAERS Safety Report 8691981 (Version 2)
Quarter: 2013Q4

REPORT INFORMATION
  Report Type: Spontaneous
  Country: US (occurrence: US)
  Receive Date: 20120730
  Receipt Date: 20131101
  Transmission Date: 20140711
  Serious: No
  Sender: FDA-Public Use
  Company Number: US-009507513-1207USA009734

PATIENT
  Age: 72 Year
  Sex: Male

DRUGS (1)
  1. ZOCOR [Suspect]
     Dosage: 40 MG, HS
     Route: 048

REACTIONS (5)
  - Blood urea increased [Unknown]
  - Renal disorder [Unknown]
  - Rash [Unknown]
  - Blood creatine increased [Unknown]
  - Urticaria [Unknown]
